FAERS Safety Report 14544952 (Version 1)
Quarter: 2018Q1

REPORT INFORMATION
  Report Type: Spontaneous
  Country: US (occurrence: US)
  Receive Date: 20180215
  Receipt Date: 20180215
  Transmission Date: 20180509
  Serious: Yes (Disabling)
  Sender: FDA-Public Use
  Company Number: None

PATIENT
  Age: 51 Year
  Sex: Female
  Weight: 99 kg

DRUGS (7)
  1. LAMOTRAGINE [Concomitant]
     Active Substance: LAMOTRIGINE
  2. CITALAPRAM [Concomitant]
  3. PRAZOSIN. [Concomitant]
     Active Substance: PRAZOSIN
  4. BUSPIRONE [Concomitant]
     Active Substance: BUSPIRONE HYDROCHLORIDE
  5. MELETONIN [Concomitant]
  6. CPAP [Concomitant]
     Active Substance: DEVICE
  7. MEFLOQUINE [Suspect]
     Active Substance: MEFLOQUINE
     Indication: MALARIA PROPHYLAXIS
     Dosage: ?          QUANTITY:1 TABLET(S);OTHER FREQUENCY:WEEKLY;?
     Route: 048
     Dates: start: 19930419, end: 19930831

REACTIONS (12)
  - Rash [None]
  - Nausea [None]
  - Mood swings [None]
  - Nervous system disorder [None]
  - Headache [None]
  - Paranoia [None]
  - Visual impairment [None]
  - Arnold-Chiari malformation [None]
  - Balance disorder [None]
  - Nightmare [None]
  - CSF pressure increased [None]
  - Skin disorder [None]

NARRATIVE: CASE EVENT DATE: 19930422
